FAERS Safety Report 9889358 (Version 2)
Quarter: 2014Q1

REPORT INFORMATION
  Report Type: Report from Study
  Country: US (occurrence: US)
  Receive Date: 20140211
  Receipt Date: 20140211
  Transmission Date: 20141002
  Serious: Yes (Hospitalization)
  Sender: FDA-Public Use
  Company Number: US-ABBVIE-13P-163-1133990-00

PATIENT
  Age: 60 Year
  Sex: Female
  Weight: 111.23 kg

DRUGS (7)
  1. HUMIRA [Suspect]
     Indication: PSORIASIS
     Route: 058
     Dates: start: 20120105, end: 201305
  2. HUMIRA [Suspect]
     Dates: start: 201306
  3. PREDNISONE [Concomitant]
     Indication: PSORIASIS
     Dosage: 1 IN 1 DAY
  4. NEXIUM [Concomitant]
     Indication: PRODUCT USED FOR UNKNOWN INDICATION
  5. DIOVAN [Concomitant]
  6. SULFASALAZINE [Concomitant]
     Indication: PSORIASIS
  7. BACTRIM [Concomitant]
     Indication: PRODUCT USED FOR UNKNOWN INDICATION

REACTIONS (6)
  - Gallbladder enlargement [Recovering/Resolving]
  - Hepatic steatosis [Recovering/Resolving]
  - Mass [Recovering/Resolving]
  - Cholelithiasis [Recovering/Resolving]
  - Animal scratch [Recovered/Resolved]
  - Infection [Unknown]
